FAERS Safety Report 10893501 (Version 1)
Quarter: 2015Q1

REPORT INFORMATION
  Report Type: Report from Study
  Country: US (occurrence: US)
  Receive Date: 20150306
  Receipt Date: 20150306
  Transmission Date: 20150721
  Serious: Yes (Death, Hospitalization, Other)
  Sender: FDA-Public Use
  Company Number: US-TAKEDA-2015MPI000544

PATIENT
  Age: 73 Year
  Sex: Male
  Weight: 65.9 kg

DRUGS (3)
  1. VELCADE [Suspect]
     Active Substance: BORTEZOMIB
     Indication: PLASMA CELL MYELOMA
     Dosage: 1.3 MG/M2, UNK
     Route: 058
     Dates: start: 20140320, end: 20150205
  2. DEXAMETHASONE. [Suspect]
     Active Substance: DEXAMETHASONE
     Indication: PLASMA CELL MYELOMA
     Dosage: 20 MG, UNK
     Route: 048
     Dates: start: 20140320, end: 20150206
  3. DINACICLIB [Suspect]
     Active Substance: DINACICLIB
     Indication: PLASMA CELL MYELOMA
     Dosage: 12 MG/M2, UNK
     Route: 042
     Dates: start: 20140320, end: 20150205

REACTIONS (2)
  - Pneumonia [Fatal]
  - Multi-organ failure [Fatal]

NARRATIVE: CASE EVENT DATE: 20150208
